FAERS Safety Report 22284438 (Version 1)
Quarter: 2023Q2

REPORT INFORMATION
  Report Type: Spontaneous
  Country: US (occurrence: None)
  Receive Date: 20230503
  Receipt Date: 20230503
  Transmission Date: 20230721
  Serious: No
  Sender: FDA-Public Use
  Company Number: None

PATIENT
  Age: 11 Year
  Sex: Male
  Weight: 39.15 kg

DRUGS (4)
  1. LURASIDONE [Suspect]
     Active Substance: LURASIDONE
     Indication: Disruptive mood dysregulation disorder
     Dosage: OTHER QUANTITY : 1 TABLET(S);?FREQUENCY : DAILY;?
     Route: 048
     Dates: start: 20230314
  2. ATOMOXETINE [Concomitant]
     Active Substance: ATOMOXETINE
  3. GUANFACINE [Concomitant]
     Active Substance: GUANFACINE
  4. IBUPROFEN [Concomitant]
     Active Substance: IBUPROFEN

REACTIONS (9)
  - Product substitution issue [None]
  - Educational problem [None]
  - Behaviour disorder [None]
  - Product quality issue [None]
  - Aggression [None]
  - Screaming [None]
  - Feeling guilty [None]
  - Suicidal ideation [None]
  - Insurance issue [None]

NARRATIVE: CASE EVENT DATE: 20230320
